FAERS Safety Report 8209757-5 (Version None)
Quarter: 2012Q1

REPORT INFORMATION
  Report Type: 
  Country: None (occurrence: None)
  Receive Date: 20120314
  Receipt Date: 20120301
  Transmission Date: 20120608
  Serious: Yes (Other)
  Sender: FDA-Public Use
  Company Number: US-ELI_LILLY_AND_COMPANY-US201203000940

PATIENT
  Age: 55 Year
  Sex: Male

DRUGS (2)
  1. CYMBALTA [Suspect]
     Indication: DEPRESSION
     Dosage: 30 MG, UNKNOWN
  2. XANAX [Concomitant]

REACTIONS (3)
  - HYPERSENSITIVITY [None]
  - RASH GENERALISED [None]
  - DYSPNOEA [None]
